FAERS Safety Report 11433021 (Version 3)
Quarter: 2015Q3

REPORT INFORMATION
  Report Type: Report from Study
  Country: DK (occurrence: DK)
  Receive Date: 20150829
  Receipt Date: 20150908
  Transmission Date: 20151125
  Serious: Yes (Other)
  Sender: FDA-Public Use
  Company Number: DK-AMGEN-DNKNI2015086547

PATIENT
  Age: 69 Year
  Sex: Male
  Weight: 61.8 kg

DRUGS (15)
  1. EPIRUBICIN [Concomitant]
     Active Substance: EPIRUBICIN
  2. HJERTEMAGNYL                       /00002701/ [Concomitant]
     Dosage: 150 MG, QD
  3. CENTYL [Concomitant]
     Dosage: 1 D (2.5 + 573)F, QD
  4. XGEVA [Suspect]
     Active Substance: DENOSUMAB
     Indication: METASTASES TO BONE
     Dosage: 120 MG, Q3MO
     Route: 058
     Dates: start: 201412
  5. DELEPSINE [Concomitant]
     Active Substance: DIVALPROEX SODIUM
     Dosage: 300 MG, 3 TABS QD BEFORE BEDTIME
  6. IBUMETIN [Concomitant]
     Active Substance: IBUPROFEN
     Dosage: 400 MG, AS NECESSARY
  7. DENOSUMAB [Suspect]
     Active Substance: DENOSUMAB
     Indication: PRODUCT USED FOR UNKNOWN INDICATION
     Dosage: UNK
     Route: 065
  8. PERSANTINE [Concomitant]
     Active Substance: DIPYRIDAMOLE
     Dosage: 200 MG, BID
  9. LOSARTAN POTASSIUM. [Concomitant]
     Active Substance: LOSARTAN POTASSIUM
     Dosage: 50 MG, QD
  10. OXALIPLATIN. [Concomitant]
     Active Substance: OXALIPLATIN
  11. TRADOLAN [Concomitant]
     Active Substance: TRAMADOL
     Dosage: 50 MG, AS NECESSARY
  12. KALEORID [Concomitant]
     Active Substance: POTASSIUM CHLORIDE
     Dosage: 750 MG, TID
  13. SIMVASTATIN. [Concomitant]
     Active Substance: SIMVASTATIN
     Dosage: 40 MG, QD
  14. CAPECITABINE. [Concomitant]
     Active Substance: CAPECITABINE
  15. AMLODIPINE [Concomitant]
     Active Substance: AMLODIPINE BESYLATE
     Dosage: 5 MG, QD

REACTIONS (1)
  - Osteonecrosis of jaw [Not Recovered/Not Resolved]

NARRATIVE: CASE EVENT DATE: 20150507
